FAERS Safety Report 8167375-1 (Version None)
Quarter: 2012Q1

REPORT INFORMATION
  Report Type: 
  Country: None (occurrence: None)
  Receive Date: 20120221
  Receipt Date: 20110216
  Transmission Date: 20120608
  Serious: Yes (Hospitalization)
  Sender: FDA-Public Use
  Company Number: 830469

PATIENT
  Age: 69 Year
  Sex: Male

DRUGS (3)
  1. IMIPENEM/CILASTATIN [Suspect]
     Indication: PNEUMONIA ASPIRATION
     Dates: start: 20060801
  2. VANCOMYCIN HYDROCHLORIDE [Suspect]
     Indication: PNEUMONIA ASPIRATION
     Dates: start: 20060801
  3. (TPN /00897001/) [Suspect]
     Indication: PARENTERAL NUTRITION
     Dosage: INTRAVENOUS (NOT OTHERWISE SPECIFIED)
     Route: 042
     Dates: start: 20060801

REACTIONS (7)
  - INTERVERTEBRAL DISC SPACE NARROWING [None]
  - LUMBAR VERTEBRAL FRACTURE [None]
  - INTERVERTEBRAL DISCITIS [None]
  - EXTRADURAL ABSCESS [None]
  - SPONDYLOLISTHESIS [None]
  - CANDIDA OSTEOMYELITIS [None]
  - UPPER GASTROINTESTINAL HAEMORRHAGE [None]
